FAERS Safety Report 16703757 (Version 6)
Quarter: 2019Q4

REPORT INFORMATION
  Report Type: Spontaneous
  Country: US (occurrence: US)
  Receive Date: 20190814
  Receipt Date: 20191125
  Transmission Date: 20200122
  Serious: Yes (Hospitalization, Other)
  Sender: FDA-Public Use
  Company Number: US-PFIZER INC-2019345974

PATIENT
  Age: 75 Year
  Sex: Female
  Weight: 59 kg

DRUGS (10)
  1. FENOFIBRATE S [Concomitant]
     Indication: BLOOD CHOLESTEROL ABNORMAL
     Dosage: 145 MG, UNK
  2. AMLODIPINE BESYLATE. [Concomitant]
     Active Substance: AMLODIPINE BESYLATE
     Dosage: 10 MG, DAILY
  3. ULTRAM [Concomitant]
     Active Substance: TRAMADOL HYDROCHLORIDE
     Indication: PAIN
     Dosage: 50 MG, UNK
  4. GABAPENTIN. [Concomitant]
     Active Substance: GABAPENTIN
     Dosage: UNK (ONLY TOOK FOR 13 HRS APPROX)
  5. DAYPRO [Suspect]
     Active Substance: OXAPROZIN
     Indication: ARTHRITIS
     Dosage: 600 MG, 2X/DAY
     Route: 048
     Dates: start: 1998
  6. DAYPRO [Suspect]
     Active Substance: OXAPROZIN
     Indication: GENERAL PHYSICAL HEALTH DETERIORATION
     Dosage: 600 MG, 2X/DAY
     Route: 048
     Dates: start: 20020613, end: 20020911
  7. TRAMADOL. [Concomitant]
     Active Substance: TRAMADOL
     Indication: PAIN
     Dosage: UNK
  8. GABAPENTIN. [Concomitant]
     Active Substance: GABAPENTIN
     Dosage: 300 MG, 2X/DAY
  9. DAYPRO [Suspect]
     Active Substance: OXAPROZIN
     Dosage: 600 MG, 2X/DAY
     Route: 048
  10. TYLENOL [Concomitant]
     Active Substance: ACETAMINOPHEN
     Indication: PAIN
     Dosage: OCCASIONALLY, MAY BE 1-2 A MONTH, AS NEEDED

REACTIONS (8)
  - Spinal stenosis [Unknown]
  - Spinal cord compression [Unknown]
  - Back pain [Unknown]
  - Therapeutic product effect incomplete [Unknown]
  - Spinal osteoarthritis [Unknown]
  - Spinal fusion acquired [Unknown]
  - Renal failure [Not Recovered/Not Resolved]
  - Cervical spinal stenosis [Unknown]

NARRATIVE: CASE EVENT DATE: 2014
